FAERS Safety Report 5596482-2 (Version None)
Quarter: 2008Q1

REPORT INFORMATION
  Report Type: 
  Country: None (occurrence: None)
  Receive Date: 20080118
  Receipt Date: 20080109
  Transmission Date: 20080703
  Serious: Yes (Other)
  Sender: FDA-Public Use
  Company Number: US-PFIZER INC-2007095686

PATIENT
  Age: 57 Year
  Sex: Female
  Weight: 112.9 kg

DRUGS (8)
  1. LYRICA [Suspect]
     Dates: start: 20070810, end: 20070101
  2. LEVOTHYROXINE SODIUM [Concomitant]
  3. NEXIUM [Concomitant]
  4. ACTOS [Concomitant]
  5. LISINOPRIL [Concomitant]
  6. CELEBREX [Concomitant]
  7. OXYBUTYNIN CHLORIDE [Concomitant]
     Route: 062
  8. AZATHIOPRINE [Concomitant]

REACTIONS (3)
  - MUSCLE SPASMS [None]
  - OEDEMA PERIPHERAL [None]
  - SKIN LESION [None]
